FAERS Safety Report 15072852 (Version 1)
Quarter: 2018Q2

REPORT INFORMATION
  Report Type: Spontaneous
  Country: GB (occurrence: GB)
  Receive Date: 20180627
  Receipt Date: 20180627
  Transmission Date: 20180711
  Serious: Yes (Other)
  Sender: FDA-Public Use
  Company Number: GB-CONCORDIA PHARMACEUTICALS INC.-E2B_00012891

PATIENT
  Age: 73 Year
  Sex: Female
  Weight: 85.72 kg

DRUGS (7)
  1. PREDNISOLONE. [Suspect]
     Active Substance: PREDNISOLONE
     Indication: POLYMYALGIA RHEUMATICA
     Route: 048
  2. PREMARIN [Concomitant]
     Active Substance: ESTROGENS, CONJUGATED
  3. CALCIUM [Concomitant]
     Active Substance: CALCIUM
  4. PREDNISOLONE. [Suspect]
     Active Substance: PREDNISOLONE
     Indication: POLYMYALGIA RHEUMATICA
     Route: 048
     Dates: start: 20160715
  5. AMLODIPINE [Concomitant]
     Active Substance: AMLODIPINE BESYLATE
  6. CANDESARTAN CILEXETIL. [Concomitant]
     Active Substance: CANDESARTAN CILEXETIL
  7. PREDNISOLONE. [Suspect]
     Active Substance: PREDNISOLONE
     Indication: POLYMYALGIA RHEUMATICA
     Route: 048

REACTIONS (7)
  - Insomnia [Unknown]
  - Fatigue [Unknown]
  - Malaise [Not Recovered/Not Resolved]
  - Poor quality sleep [Unknown]
  - Pain [Unknown]
  - Gait inability [Unknown]
  - Hypokinesia [Not Recovered/Not Resolved]

NARRATIVE: CASE EVENT DATE: 20171223
